FAERS Safety Report 23322925 (Version 2)
Quarter: 2024Q1

REPORT INFORMATION
  Report Type: Spontaneous
  Country: US (occurrence: US)
  Receive Date: 20231220
  Receipt Date: 20240130
  Transmission Date: 20240410
  Serious: No
  Sender: FDA-Public Use
  Company Number: US-BAUSCHBL-2023BNL013134

PATIENT
  Sex: Female

DRUGS (1)
  1. ERYTHROMYCIN [Suspect]
     Active Substance: ERYTHROMYCIN
     Indication: Product used for unknown indication
     Route: 065

REACTIONS (7)
  - Burning sensation [Unknown]
  - Swelling [Unknown]
  - Erythema [Unknown]
  - Irritability [Unknown]
  - Insomnia [Unknown]
  - Illness [Unknown]
  - Product complaint [Unknown]
